FAERS Safety Report 10023993 (Version 1)
Quarter: 2014Q1

REPORT INFORMATION
  Report Type: Spontaneous
  Country: US (occurrence: None)
  Receive Date: 20140318
  Receipt Date: 20140318
  Transmission Date: 20141002
  Serious: Yes (Hospitalization)
  Sender: FDA-Public Use
  Company Number: AEGR000336

PATIENT
  Age: 65 Year
  Sex: Female
  Weight: 81.6 kg

DRUGS (5)
  1. JUXTAPID [Suspect]
     Indication: PRODUCT USED FOR UNKNOWN INDICATION
     Route: 048
     Dates: start: 20130326, end: 20140224
  2. ROSUVASTATIN [Concomitant]
  3. EZETIMIBE [Concomitant]
  4. BILE ACID SEQUESTRANTS [Concomitant]
  5. ASPIRIN [Concomitant]

REACTIONS (2)
  - Haemorrhoidal haemorrhage [None]
  - Product used for unknown indication [None]
